FAERS Safety Report 6088684-6 (Version None)
Quarter: 2009Q1

REPORT INFORMATION
  Report Type: 
  Country: None (occurrence: None)
  Receive Date: 20090224
  Receipt Date: 20090220
  Transmission Date: 20090719
  Serious: Yes (Life-Threatening, Hospitalization)
  Sender: FDA-Public Use
  Company Number: US-BRISTOL-MYERS SQUIBB COMPANY-14325112

PATIENT
  Age: 68 Year
  Sex: Male

DRUGS (10)
  1. COUMADIN [Suspect]
  2. PLAVIX [Suspect]
  3. ASPIRIN [Suspect]
     Dosage: RESTARTED WITH 325 MG DAILY
  4. DILANTIN [Concomitant]
     Dosage: TAKEN AS DILANTIN EXTENDED RELEASE. ALSO TAKEN 30MG BID
  5. FOSAMAX [Concomitant]
  6. ATENOLOL [Concomitant]
  7. CALCIUM [Concomitant]
  8. PRILOSEC [Concomitant]
  9. VYTORIN [Concomitant]
  10. COMBIVENT [Concomitant]
     Dosage: 2 DF-2 PUFF

REACTIONS (3)
  - MESOTHELIOMA MALIGNANT [None]
  - PLEURAL HAEMORRHAGE [None]
  - SYNCOPE [None]
